FAERS Safety Report 5781585-X (Version None)
Quarter: 2008Q2

REPORT INFORMATION
  Report Type: 
  Country: None (occurrence: None)
  Receive Date: 20080623
  Receipt Date: 20080612
  Transmission Date: 20081010
  Serious: Yes (Hospitalization)
  Sender: FDA-Public Use
  Company Number: US-JNJFOC-20080603857

PATIENT
  Sex: Female

DRUGS (3)
  1. DURAGESIC-100 [Suspect]
     Indication: PAIN
     Dosage: 2X100UG/HR PATCHES
     Route: 062
  2. METHADONE HCL [Concomitant]
     Route: 048
  3. VICODIN [Concomitant]
     Indication: PAIN
     Route: 048

REACTIONS (2)
  - CARDIAC ARREST [None]
  - MEDICATION ERROR [None]
